FAERS Safety Report 15237614 (Version 6)
Quarter: 2019Q1

REPORT INFORMATION
  Report Type: Spontaneous
  Country: JP (occurrence: JP)
  Receive Date: 20180803
  Receipt Date: 20190218
  Transmission Date: 20190417
  Serious: Yes (Death, Other)
  Sender: FDA-Public Use
  Company Number: JP-ACTELION-A-CH2018-176654

PATIENT
  Age: 77 Year
  Sex: Male
  Weight: 54.1 kg

DRUGS (21)
  1. ZITHROMAC [Concomitant]
     Active Substance: AZITHROMYCIN DIHYDRATE
     Dosage: UNK
     Dates: start: 20170725
  2. HERBESSER [Suspect]
     Active Substance: DILTIAZEM HYDROCHLORIDE
     Indication: PULMONARY ARTERIAL HYPERTENSION
     Dosage: 100 MG, QD
     Route: 048
     Dates: end: 20180630
  3. LANSOPRAZOLE. [Concomitant]
     Active Substance: LANSOPRAZOLE
     Dosage: 15 MG, QD
     Dates: start: 20180411, end: 20180630
  4. ACETAMINOPHEN. [Concomitant]
     Active Substance: ACETAMINOPHEN
     Indication: CANCER PAIN
     Dosage: 1200 MG, QD
     Dates: start: 20180411, end: 20180630
  5. MS CONTIN [Concomitant]
     Active Substance: MORPHINE SULFATE
     Indication: CANCER PAIN
     Dosage: 20 MG, QD
     Dates: start: 20180427, end: 20180511
  6. UPTRAVI [Suspect]
     Active Substance: SELEXIPAG
     Indication: PULMONARY ARTERIAL HYPERTENSION
     Dosage: 1.4 MG, BID
     Route: 048
     Dates: start: 20180427, end: 20180629
  7. FUROSEMIDE. [Suspect]
     Active Substance: FUROSEMIDE
     Indication: PULMONARY ARTERIAL HYPERTENSION
     Dosage: 20 MG, QD
     Route: 048
     Dates: start: 20180427, end: 20180629
  8. ALLOPURINOL. [Concomitant]
     Active Substance: ALLOPURINOL
     Indication: HYPERURICAEMIA
     Dosage: 200 MG, QD
     Dates: start: 20180427, end: 20180629
  9. MAGNESIUM OXIDE. [Concomitant]
     Active Substance: MAGNESIUM OXIDE
     Dosage: 1 G, QD
     Dates: start: 20180427, end: 20180630
  10. TRAMAL [Concomitant]
     Active Substance: TRAMADOL
     Indication: CANCER PAIN
     Dosage: 100 MG, QD
     Route: 048
     Dates: start: 20180511, end: 20180630
  11. UPTRAVI [Suspect]
     Active Substance: SELEXIPAG
     Dosage: UNK
     Route: 048
     Dates: start: 20170725
  12. ALLOPURINOL. [Concomitant]
     Active Substance: ALLOPURINOL
     Dosage: UNK
  13. OXYGEN. [Concomitant]
     Active Substance: OXYGEN
  14. OPSUMIT [Suspect]
     Active Substance: MACITENTAN
     Indication: PULMONARY ARTERIAL HYPERTENSION
     Dosage: 10 MG, QD
     Route: 048
     Dates: start: 20180427, end: 20180629
  15. SPIRONOLACTONE. [Suspect]
     Active Substance: SPIRONOLACTONE
     Indication: PULMONARY ARTERIAL HYPERTENSION
     Dosage: 25 MG, QD
     Route: 048
     Dates: start: 20180427, end: 20180629
  16. HERBESSER [Suspect]
     Active Substance: DILTIAZEM HYDROCHLORIDE
     Indication: PRINZMETAL ANGINA
  17. ISOSORBIDE MONONITRATE. [Concomitant]
     Active Substance: ISOSORBIDE MONONITRATE
     Dosage: UNK
  18. UPTRAVI [Suspect]
     Active Substance: SELEXIPAG
     Dosage: 2.4 MG, QD
     Route: 048
  19. BETAMETHASONE. [Concomitant]
     Active Substance: BETAMETHASONE
     Indication: INTERSTITIAL LUNG DISEASE
     Dosage: UNK
     Dates: start: 20180411, end: 20180630
  20. ISOSORBIDE MONONITRATE. [Concomitant]
     Active Substance: ISOSORBIDE MONONITRATE
     Dosage: 20 MG, QD
     Dates: start: 20180427, end: 20180630
  21. NOVAMIN [Concomitant]
     Dosage: 5 MG, QD
     Dates: start: 20180427, end: 20180511

REACTIONS (5)
  - Hypotension [Recovered/Resolved]
  - Oral candidiasis [Recovering/Resolving]
  - Neoplasm malignant [Fatal]
  - Squamous cell carcinoma of lung [Fatal]
  - Decreased immune responsiveness [Fatal]

NARRATIVE: CASE EVENT DATE: 20180622
